FAERS Safety Report 9594308 (Version 1)
Quarter: 2013Q3

REPORT INFORMATION
  Report Type: Spontaneous
  Country: US (occurrence: None)
  Receive Date: 20130927
  Receipt Date: 20130927
  Transmission Date: 20140515
  Serious: No
  Sender: FDA-Public Use
  Company Number: CABO-13003177

PATIENT
  Age: 58 Year
  Sex: Male

DRUGS (7)
  1. COMETRIQ [Suspect]
     Indication: PROSTATE CANCER
     Route: 048
     Dates: start: 20130817
  2. ATENOLOL [Concomitant]
  3. ATORVASTATIN [Concomitant]
  4. FENOFIBRATE [Concomitant]
  5. PROZAC [Concomitant]
  6. MULTIVITAMIN [Concomitant]
  7. LOSARTAN [Concomitant]

REACTIONS (1)
  - Abdominal pain [None]
